FAERS Safety Report 12965820 (Version 4)
Quarter: 2017Q1

REPORT INFORMATION
  Report Type: Report from Study
  Country: US (occurrence: US)
  Receive Date: 20161122
  Receipt Date: 20170209
  Transmission Date: 20170428
  Serious: Yes (Hospitalization)
  Sender: FDA-Public Use
  Company Number: US-ROCHE-1856677

PATIENT
  Age: 76 Year
  Sex: Female
  Weight: 73.9 kg

DRUGS (6)
  1. RITUXIMAB [Suspect]
     Active Substance: RITUXIMAB
     Indication: B-CELL LYMPHOMA
     Dosage: THE DATE OF THE MOST RECENT DOSE OF RITUXIMAB 700 MG PRIOR TO SAE ONSET WAS ADMINISTERED ON 03/NOV/2
     Route: 042
     Dates: start: 20161103
  2. DOXORUBICIN [Suspect]
     Active Substance: DOXORUBICIN
     Indication: B-CELL LYMPHOMA
     Dosage: THE DATE OF THE MOST RECENT DOSE OF DOXORUBICIN 95 MG PRIOR TO SAE ONSET WAS ADMINISTERED ON 03/NOV/
     Route: 042
     Dates: start: 20161103
  3. CYCLOPHOSPHAMIDE. [Suspect]
     Active Substance: CYCLOPHOSPHAMIDE
     Indication: B-CELL LYMPHOMA
     Dosage: THE DATE OF THE MOST RECENT DOSE OF CYCLOPHOSPHAMIDE 1400 MG PRIOR TO SAE ONSET WAS ADMINISTERED ON
     Route: 042
     Dates: start: 20161103
  4. PREDNISONE. [Suspect]
     Active Substance: PREDNISONE
     Indication: B-CELL LYMPHOMA
     Dosage: ON DAYS 1-5?THE DATE OF THE MOST RECENT DOSE OF PREDNISONE 100 MG PRIOR TO SAE ONSET WAS ADMINISTERE
     Route: 048
     Dates: start: 20161103
  5. VENETOCLAX [Suspect]
     Active Substance: VENETOCLAX
     Indication: B-CELL LYMPHOMA
     Dosage: ADMINISTERED DAILY ON DAYS 4-10 OF CYCLE 1, AND DAYS 1-10 OF CYCLES 2-8?THE DATE OF THE MOST RECENT
     Route: 048
     Dates: start: 20161106
  6. VINCRISTINE [Suspect]
     Active Substance: VINCRISTINE
     Indication: B-CELL LYMPHOMA
     Dosage: THE DATE OF THE MOST RECENT DOSE OF VINCRISTINE 2 MG PRIOR TO SAE ONSET WAS ADMINISTERED ON 03/NOV/2
     Route: 042
     Dates: start: 20161103

REACTIONS (1)
  - Acute kidney injury [Not Recovered/Not Resolved]

NARRATIVE: CASE EVENT DATE: 20161116
